FAERS Safety Report 25784950 (Version 1)
Quarter: 2025Q3

REPORT INFORMATION
  Report Type: Spontaneous
  Country: US (occurrence: US)
  Receive Date: 20250910
  Receipt Date: 20250910
  Transmission Date: 20251021
  Serious: Yes (Other)
  Sender: PADAGIS
  Company Number: US-PADAGIS-2025PAD01058

PATIENT

DRUGS (5)
  1. TRIAMCINOLONE ACETONIDE [Suspect]
     Active Substance: TRIAMCINOLONE ACETONIDE
     Indication: Ichthyosis
     Route: 065
  2. HYDROCORTISONE [Suspect]
     Active Substance: HYDROCORTISONE
     Indication: Adverse drug reaction
     Route: 065
  3. DIPHENHYDRAMINE HYDROCHLORIDE [Suspect]
     Active Substance: DIPHENHYDRAMINE HYDROCHLORIDE
     Indication: Adverse drug reaction
     Route: 065
  4. RELUGOLIX [Concomitant]
     Active Substance: RELUGOLIX
     Indication: Prostate cancer
     Route: 065
  5. APALUTAMIDE [Concomitant]
     Active Substance: APALUTAMIDE
     Indication: Prostate cancer
     Route: 065

REACTIONS (1)
  - Drug ineffective [Unknown]
